FAERS Safety Report 10787283 (Version 1)
Quarter: 2015Q1

REPORT INFORMATION
  Report Type: Spontaneous
  Country: SG (occurrence: SG)
  Receive Date: 20150211
  Receipt Date: 20150211
  Transmission Date: 20150721
  Serious: Yes (Other)
  Sender: FDA-Public Use
  Company Number: PHHY2015SG013645

PATIENT
  Age: 18 Year
  Sex: Female

DRUGS (4)
  1. NIFEDIPINE. [Suspect]
     Active Substance: NIFEDIPINE
     Indication: TOCOLYSIS
     Dosage: 4 DF, LOADING DOSE/ EVERY EVERY 15 MIN
     Route: 048
  2. PENICILLIN G SODIUM. [Suspect]
     Active Substance: PENICILLIN G SODIUM
     Indication: PRETERM PREMATURE RUPTURE OF MEMBRANES
     Route: 042
  3. NIFEDIPINE. [Suspect]
     Active Substance: NIFEDIPINE
     Dosage: 10 MG 6 HOURLY
  4. ERYTHROMYCIN. [Suspect]
     Active Substance: ERYTHROMYCIN
     Indication: PRETERM PREMATURE RUPTURE OF MEMBRANES
     Route: 048

REACTIONS (10)
  - Maternal exposure during pregnancy [Recovered/Resolved]
  - Somnolence [Recovered/Resolved]
  - Chest discomfort [Recovered/Resolved]
  - Unresponsive to stimuli [Recovered/Resolved]
  - Tachycardia [Recovered/Resolved]
  - Fatigue [Recovered/Resolved]
  - Premature delivery [Recovered/Resolved]
  - Asthenia [Recovered/Resolved]
  - Mental disorder [Recovered/Resolved]
  - Blood pressure decreased [Recovered/Resolved]
